FAERS Safety Report 5324244-X (Version None)
Quarter: 2007Q2

REPORT INFORMATION
  Report Type: 
  Country: None (occurrence: None)
  Receive Date: 20070514
  Receipt Date: 20070501
  Transmission Date: 20071010
  Serious: Yes (Hospitalization, Disabling)
  Sender: FDA-Public Use
  Company Number: GB-ASTRAZENECA-2007GB00934

PATIENT
  Age: 84 Year
  Sex: Female
  Weight: 82 kg

DRUGS (11)
  1. CRESTOR [Suspect]
     Route: 048
     Dates: start: 20070101, end: 20070416
  2. ALFACALCIDOL [Concomitant]
  3. ALLOPURINOL [Concomitant]
  4. AMITRIPTYLINE HCL [Concomitant]
  5. CLOPIDOGREL [Concomitant]
     Route: 048
     Dates: start: 20060420
  6. CO-CODAMOL [Concomitant]
  7. EZETIMIBE [Concomitant]
     Route: 048
     Dates: start: 20040621
  8. GTN-S [Concomitant]
  9. ISOSORBIDE MONONITRATE [Concomitant]
  10. LACTULOSE [Concomitant]
     Route: 048
     Dates: start: 20070405
  11. LEVOTHYROXINE SODIUM [Concomitant]

REACTIONS (5)
  - ASTHENIA [None]
  - BLOOD CREATINE PHOSPHOKINASE INCREASED [None]
  - MOBILITY DECREASED [None]
  - RENAL FAILURE ACUTE [None]
  - URINARY TRACT INFECTION [None]
